FAERS Safety Report 15223241 (Version 3)
Quarter: 2019Q2

REPORT INFORMATION
  Report Type: Report from Study
  Country: US (occurrence: US)
  Receive Date: 20180731
  Receipt Date: 20190522
  Transmission Date: 20190711
  Serious: Yes (Other)
  Sender: FDA-Public Use
  Company Number: PHEH2018US030327

PATIENT
  Age: 84 Year
  Sex: Female
  Weight: 99 kg

DRUGS (4)
  1. KISQALI FEMARA CO-PACK [Suspect]
     Active Substance: LETROZOLE\RIBOCICLIB
     Indication: PRODUCT USED FOR UNKNOWN INDICATION
     Dosage: 400 OT, UNK
     Route: 065
  2. KISQALI FEMARA CO-PACK [Suspect]
     Active Substance: LETROZOLE\RIBOCICLIB
     Dosage: UNK
     Route: 065
     Dates: start: 201709
  3. KISQALI FEMARA CO-PACK [Suspect]
     Active Substance: LETROZOLE\RIBOCICLIB
     Indication: PRODUCT USED FOR UNKNOWN INDICATION
     Dosage: UNK
     Route: 065
  4. KISQALI FEMARA CO-PACK [Suspect]
     Active Substance: LETROZOLE\RIBOCICLIB
     Dosage: 200 OT, UNK
     Route: 065
     Dates: start: 201709, end: 201808

REACTIONS (10)
  - Neutropenia [Unknown]
  - Chest pain [Unknown]
  - Dyspnoea [Unknown]
  - Cystitis [Recovered/Resolved]
  - Paraesthesia [Unknown]
  - Anxiety [Unknown]
  - Breast pain [Unknown]
  - Micturition urgency [Unknown]
  - Liver disorder [Recovered/Resolved]
  - Pruritus [Unknown]

NARRATIVE: CASE EVENT DATE: 201709
